FAERS Safety Report 5684545-2 (Version None)
Quarter: 2008Q1

REPORT INFORMATION
  Report Type: 
  Country: None (occurrence: None)
  Receive Date: 20080328
  Receipt Date: 20070312
  Transmission Date: 20080703
  Serious: Yes (Hospitalization)
  Sender: FDA-Public Use
  Company Number: US-BRISTOL-MYERS SQUIBB COMPANY-13660501

PATIENT
  Age: 61 Year
  Sex: Female

DRUGS (5)
  1. ERBITUX [Suspect]
     Indication: COLON CANCER
     Dates: start: 20060925
  2. TYLENOL (CAPLET) [Concomitant]
     Route: 048
  3. ZOFRAN [Concomitant]
     Route: 042
  4. CAMPTOSAR [Concomitant]
     Route: 042
  5. DECADRON [Concomitant]
     Route: 042

REACTIONS (5)
  - BLOOD PRESSURE IMMEASURABLE [None]
  - DYSPNOEA [None]
  - HOT FLUSH [None]
  - INFUSION RELATED REACTION [None]
  - PULSE ABSENT [None]
